FAERS Safety Report 20380196 (Version 2)
Quarter: 2022Q1

REPORT INFORMATION
  Report Type: Spontaneous
  Country: US (occurrence: US)
  Receive Date: 20220126
  Receipt Date: 20220220
  Transmission Date: 20220423
  Serious: Yes (Other)
  Sender: FDA-Public Use
  Company Number: US-drreddys-SPO/USA/22/0146154

PATIENT
  Age: 28 Year
  Sex: Male

DRUGS (2)
  1. FENTANYL CITRATE [Suspect]
     Active Substance: FENTANYL CITRATE
     Indication: Product used for unknown indication
  2. METHAMPHETAMINE [Suspect]
     Active Substance: METHAMPHETAMINE
     Indication: Product used for unknown indication

REACTIONS (9)
  - Rhabdomyolysis [Unknown]
  - Hepatic failure [Unknown]
  - Deafness neurosensory [Not Recovered/Not Resolved]
  - Lactic acidosis [Unknown]
  - Acute kidney injury [Unknown]
  - Myocardial injury [Unknown]
  - Loss of consciousness [Recovered/Resolved]
  - Overdose [Unknown]
  - Drug abuse [Unknown]
